FAERS Safety Report 10356823 (Version 1)
Quarter: 2014Q3

REPORT INFORMATION
  Report Type: Spontaneous
  Country: FR (occurrence: FR)
  Receive Date: 20140801
  Receipt Date: 20140801
  Transmission Date: 20150326
  Serious: Yes (Hospitalization)
  Sender: FDA-Public Use
  Company Number: PHHY2014FR092340

PATIENT
  Age: 67 Year
  Sex: Female

DRUGS (1)
  1. VOLTARENE [Suspect]
     Active Substance: DICLOFENAC SODIUM
     Indication: ARTHRALGIA
     Dosage: 75 MG, QD
     Route: 048
     Dates: start: 201402, end: 20140309

REACTIONS (2)
  - Duodenal ulcer haemorrhage [Recovering/Resolving]
  - Renal tubular necrosis [Recovering/Resolving]

NARRATIVE: CASE EVENT DATE: 201403
